FAERS Safety Report 5684463-X (Version None)
Quarter: 2008Q1

REPORT INFORMATION
  Report Type: 
  Country: None (occurrence: None)
  Receive Date: 20080328
  Receipt Date: 20080314
  Transmission Date: 20080703
  Serious: Yes (Hospitalization)
  Sender: FDA-Public Use
  Company Number: AU-GENENTECH-258031

PATIENT
  Sex: Male
  Weight: 72 kg

DRUGS (3)
  1. BEVACIZUMAB [Suspect]
     Indication: COLON CANCER METASTATIC
     Dosage: 502 UNK, UNK
     Route: 042
     Dates: start: 20080123, end: 20080206
  2. CAPECITABINE [Suspect]
     Indication: COLORECTAL CANCER METASTATIC
     Dosage: 2.25 MG/M2, QD
     Route: 048
     Dates: start: 20070213, end: 20080206
  3. CAPECITABINE [Suspect]
     Dosage: 4600 MG, QD
     Route: 048
     Dates: start: 20080123, end: 20080206

REACTIONS (2)
  - INTRACRANIAL HYPOTENSION [None]
  - SCIATICA [None]
